FAERS Safety Report 6294730-7 (Version None)
Quarter: 2009Q3

REPORT INFORMATION
  Report Type: 
  Country: None (occurrence: None)
  Receive Date: 20090731
  Receipt Date: 20090731
  Transmission Date: 20100115
  Serious: Yes (Other)
  Sender: FDA-Public Use
  Company Number: None

PATIENT
  Age: 29 Year
  Sex: Female
  Weight: 54.4316 kg

DRUGS (1)
  1. TOPIRAMATE [Suspect]
     Dosage: 100MG 4 A DAY PO
     Route: 048
     Dates: start: 20090601, end: 20090630

REACTIONS (3)
  - AGGRESSION [None]
  - OBSESSIVE THOUGHTS [None]
  - PSYCHOMOTOR HYPERACTIVITY [None]
